FAERS Safety Report 7909469 (Version 6)
Quarter: 2013Q2

REPORT INFORMATION
  Report Type: Spontaneous
  Country: US (occurrence: US)
  Receive Date: 20110420
  Receipt Date: 20130506
  Transmission Date: 20140414
  Serious: Yes (Other)
  Sender: FDA-Public Use
  Company Number: US-ASTRAZENECA-2011SE21255

PATIENT
  Age: 50 Year
  Sex: Female

DRUGS (4)
  1. SYMBICORT PMDI [Suspect]
     Route: 055
  2. PULMICORT FLEXIHALER [Suspect]
     Indication: ASTHMA
     Route: 055
  3. NEXIUM [Suspect]
     Route: 048
  4. SEVERAL MEDICATIONS [Concomitant]

REACTIONS (12)
  - Neoplasm malignant [Unknown]
  - Ear infection [Unknown]
  - Asthma [Unknown]
  - Granuloma annulare [Unknown]
  - Immune system disorder [Unknown]
  - Respiratory tract infection [Unknown]
  - Respiratory disorder [Unknown]
  - Sinusitis [Unknown]
  - Malaise [Unknown]
  - Hypersensitivity [Unknown]
  - Drug ineffective [Unknown]
  - Drug dose omission [Unknown]
